FAERS Safety Report 19047893 (Version 1)
Quarter: 2021Q1

REPORT INFORMATION
  Report Type: Spontaneous
  Country: US (occurrence: US)
  Receive Date: 20210324
  Receipt Date: 20210324
  Transmission Date: 20210420
  Serious: Yes (Other)
  Sender: FDA-Public Use
  Company Number: US-CELLTRION INC.-2021US003726

PATIENT

DRUGS (1)
  1. INFLIXIMAB (UNKNOWN) [Suspect]
     Active Substance: INFLIXIMAB
     Indication: CARDIAC SARCOIDOSIS
     Dosage: STANDARD DOSING FREQUENCY WITH WEIGHT?BASED DOSING
     Route: 042

REACTIONS (3)
  - Drug effective for unapproved indication [Unknown]
  - Ventricular arrhythmia [Unknown]
  - Off label use [Unknown]
